FAERS Safety Report 5262122-5 (Version None)
Quarter: 2007Q1

REPORT INFORMATION
  Report Type: 
  Country: None (occurrence: None)
  Receive Date: 20070311
  Receipt Date: 20070228
  Transmission Date: 20070707
  Serious: No
  Sender: FDA-Public Use
  Company Number: 2006UW10751

PATIENT
  Age: 430 Month
  Sex: Female
  Weight: 84.1 kg

DRUGS (4)
  1. SEROQUEL [Suspect]
     Indication: INSOMNIA
     Dosage: SAMPLES
     Route: 048
     Dates: start: 20040101
  2. RISPERDAL [Suspect]
     Dates: start: 20020101
  3. DEXATRIM [Concomitant]
     Indication: WEIGHT DECREASED
     Dates: start: 19920101
  4. ABILIFY [Concomitant]
     Dates: start: 20050101

REACTIONS (1)
  - DIABETES MELLITUS [None]
